FAERS Safety Report 21775909 (Version 1)
Quarter: 2022Q4

REPORT INFORMATION
  Report Type: Spontaneous
  Country: US (occurrence: US)
  Receive Date: 20221226
  Receipt Date: 20221226
  Transmission Date: 20230112
  Serious: No
  Sender: FDA-Public Use
  Company Number: US-MIGRATION_PFIZER-2022BHV002470

PATIENT
  Age: 59 Year
  Weight: 85.352 kg

DRUGS (3)
  1. NURTEC ODT [Suspect]
     Active Substance: RIMEGEPANT SULFATE
     Dosage: STARTED THE NURTEC DECEMBER OR JANUARY OF THIS YEAR
     Route: 060
  2. TRAMADOL [Concomitant]
     Active Substance: TRAMADOL
     Indication: Migraine
     Route: 065
  3. VITAMIN B2 [Concomitant]
     Active Substance: RIBOFLAVIN
     Indication: Migraine
     Dosage: SWALLOWED THREE VITAMIN B2
     Route: 065

REACTIONS (1)
  - Drug effect less than expected [Unknown]
